FAERS Safety Report 14493192 (Version 1)
Quarter: 2018Q1

REPORT INFORMATION
  Report Type: Spontaneous
  Country: US (occurrence: US)
  Receive Date: 20180205
  Receipt Date: 20180205
  Transmission Date: 20180509
  Serious: Yes (Hospitalization, Other)
  Sender: FDA-Public Use
  Company Number: None

PATIENT

DRUGS (2)
  1. POTASSIUM CHLORIDE. [Suspect]
     Active Substance: POTASSIUM CHLORIDE
  2. LOSARTAN. [Suspect]
     Active Substance: LOSARTAN

REACTIONS (7)
  - Fall [None]
  - Hypovolaemia [None]
  - Dizziness [None]
  - Acute kidney injury [None]
  - Dehydration [None]
  - Hepatic enzyme increased [None]
  - Hyperkalaemia [None]
